FAERS Safety Report 21578574 (Version 1)
Quarter: 2022Q4

REPORT INFORMATION
  Report Type: Spontaneous
  Country: JP (occurrence: JP)
  Receive Date: 20221110
  Receipt Date: 20221110
  Transmission Date: 20230112
  Serious: Yes (Death, Other)
  Sender: FDA-Public Use
  Company Number: JP-BRISTOL-MYERS SQUIBB COMPANY-2022-132617

PATIENT
  Age: 74 Year
  Sex: Male

DRUGS (2)
  1. IPILIMUMAB [Suspect]
     Active Substance: IPILIMUMAB
     Indication: Renal cell carcinoma
     Dosage: Q6WK
     Route: 041
     Dates: start: 20220930, end: 20220930
  2. OPDIVO [Suspect]
     Active Substance: NIVOLUMAB
     Indication: Renal cell carcinoma
     Dosage: Q2WK
     Route: 041
     Dates: start: 20220930, end: 20220930

REACTIONS (1)
  - Death [Fatal]

NARRATIVE: CASE EVENT DATE: 20221020
